FAERS Safety Report 18317855 (Version 1)
Quarter: 2020Q3

REPORT INFORMATION
  Report Type: Spontaneous
  Country: US (occurrence: US)
  Receive Date: 20200928
  Receipt Date: 20200928
  Transmission Date: 20201103
  Serious: Yes (Other)
  Sender: FDA-Public Use
  Company Number: US-SHIRE-US202030570

PATIENT
  Sex: Male

DRUGS (1)
  1. ADDERALL XR [Suspect]
     Active Substance: AMPHETAMINE ASPARTATE\AMPHETAMINE SULFATE\DEXTROAMPHETAMINE SACCHARATE\DEXTROAMPHETAMINE SULFATE
     Indication: PRODUCT USED FOR UNKNOWN INDICATION
     Dosage: UNK, 1X/DAY:QD
     Route: 050

REACTIONS (8)
  - Headache [Recovering/Resolving]
  - Psychomotor hyperactivity [Unknown]
  - Temperature intolerance [Unknown]
  - Decreased appetite [Unknown]
  - Hyperhidrosis [Unknown]
  - Bradyphrenia [Unknown]
  - Erectile dysfunction [Unknown]
  - Nervousness [Unknown]
